FAERS Safety Report 14594491 (Version 2)
Quarter: 2018Q2

REPORT INFORMATION
  Report Type: Spontaneous
  Country: IT (occurrence: IT)
  Receive Date: 20180302
  Receipt Date: 20180427
  Transmission Date: 20180711
  Serious: Yes (Other)
  Sender: FDA-Public Use
  Company Number: IT-TEVA-2018-IT-860792

PATIENT
  Age: 88 Year
  Sex: Female
  Weight: 150 kg

DRUGS (1)
  1. QUETIAPINA TEVA ITALIA [Suspect]
     Active Substance: QUETIAPINE
     Indication: NEUROPSYCHIATRIC SYMPTOMS
     Route: 048

REACTIONS (4)
  - Neuropsychiatric symptoms [Unknown]
  - Psychomotor hyperactivity [Unknown]
  - Agitation [Unknown]
  - Insomnia [Unknown]

NARRATIVE: CASE EVENT DATE: 20171213
